FAERS Safety Report 8979957 (Version 1)
Quarter: 2012Q4

REPORT INFORMATION
  Report Type: 
  Country: JP (occurrence: JP)
  Receive Date: 20121221
  Receipt Date: 20121221
  Transmission Date: 20130627
  Serious: Yes (Life-Threatening, Hospitalization)
  Sender: FDA-Public Use
  Company Number: PHHY2012JP117386

PATIENT
  Age: 73 Year
  Sex: Female

DRUGS (8)
  1. RASILEZ [Suspect]
     Indication: HYPERTENSION
     Dosage: 150 mg, daily
     Route: 048
     Dates: start: 20101227, end: 20110216
  2. NORVASC [Concomitant]
     Dosage: 10 mg, UNK
     Route: 048
  3. ADALAT CR [Concomitant]
     Dosage: 40 mg, UNK
     Route: 048
  4. MEVALOTIN [Concomitant]
     Dosage: 10 mg, UNK
     Route: 048
  5. BAYASPIRIN [Concomitant]
     Dosage: 100 mg, UNK
     Route: 048
  6. PLAVIX [Concomitant]
     Dosage: 75 mg, UNK
     Route: 048
  7. MEDET [Concomitant]
     Dosage: 500 mg, UNK
     Route: 048
  8. EUGLUCON [Concomitant]
     Dosage: 2.5 mg, UNK
     Route: 048

REACTIONS (3)
  - Bradycardia [Recovering/Resolving]
  - Sick sinus syndrome [Recovering/Resolving]
  - Hyperkalaemia [Recovering/Resolving]
